FAERS Safety Report 19300156 (Version 2)
Quarter: 2021Q2

REPORT INFORMATION
  Report Type: Spontaneous
  Country: SE (occurrence: SE)
  Receive Date: 20210525
  Receipt Date: 20210602
  Transmission Date: 20210717
  Serious: Yes (Other)
  Sender: FDA-Public Use
  Company Number: SE-BAYER-2021-145480

PATIENT
  Age: 32 Year
  Sex: Female

DRUGS (3)
  1. CARBOCAINE [Concomitant]
     Active Substance: MEPIVACAINE HYDROCHLORIDE
     Indication: INTRA-UTERINE CONTRACEPTIVE DEVICE REMOVAL
  2. MIRENA [Suspect]
     Active Substance: LEVONORGESTREL
     Dosage: 20 ?G PER DAY, CONTINUOUSLY
     Route: 015
     Dates: start: 20180413, end: 20210511
  3. IPREN [Concomitant]
     Active Substance: IBUPROFEN
     Indication: INTRA-UTERINE CONTRACEPTIVE DEVICE REMOVAL

REACTIONS (3)
  - Complication of device removal [None]
  - Device breakage [Recovered/Resolved]
  - Procedural haemorrhage [Recovered/Resolved]

NARRATIVE: CASE EVENT DATE: 20210511
